FAERS Safety Report 6193977-8 (Version None)
Quarter: 2009Q2

REPORT INFORMATION
  Report Type: 
  Country: None (occurrence: None)
  Receive Date: 20090518
  Receipt Date: 20090511
  Transmission Date: 20091009
  Serious: Yes (Disabling, Other)
  Sender: FDA-Public Use
  Company Number: PHBS2007JP16554

PATIENT
  Age: 52 Year
  Sex: Female
  Weight: 48.2 kg

DRUGS (6)
  1. NEORAL [Suspect]
     Indication: RENAL TRANSPLANT
     Route: 048
     Dates: start: 20070712, end: 20070721
  2. SIMULECT [Suspect]
     Indication: RENAL TRANSPLANT
     Dosage: 20 MG, 4 TIMES
     Route: 042
     Dates: start: 20070712
  3. CELLCEPT [Concomitant]
     Indication: RENAL TRANSPLANT
     Dosage: UNK, UNK
     Route: 048
     Dates: start: 20070712
  4. METHYLPREDNISOLONE 4MG TAB [Concomitant]
     Indication: RENAL TRANSPLANT
  5. STEROIDS NOS [Concomitant]
     Indication: RENAL TRANSPLANT
     Dates: start: 20070712
  6. PROGRAF [Concomitant]
     Indication: RENAL TRANSPLANT

REACTIONS (7)
  - HEMIPLEGIA [None]
  - KIDNEY TRANSPLANT REJECTION [None]
  - LEUKOENCEPHALOPATHY [None]
  - LEUKOPENIA [None]
  - MUSCULAR WEAKNESS [None]
  - PNEUMONIA [None]
  - TUNNEL VISION [None]
